FAERS Safety Report 16837007 (Version 1)
Quarter: 2019Q3

REPORT INFORMATION
  Report Type: Spontaneous
  Country: US (occurrence: US)
  Receive Date: 20190923
  Receipt Date: 20190923
  Transmission Date: 20191005
  Serious: No
  Sender: FDA-Public Use
  Company Number: US-NOVEN PHARMACEUTICALS, INC.-US2018000574

PATIENT

DRUGS (2)
  1. COMBIPATCH [Suspect]
     Active Substance: ESTRADIOL\NORETHINDRONE ACETATE
     Indication: NIGHT SWEATS
  2. COMBIPATCH [Suspect]
     Active Substance: ESTRADIOL\NORETHINDRONE ACETATE
     Indication: HOT FLUSH
     Dosage: 0.05/0.25 MG, UNKNOWN
     Route: 062
     Dates: end: 20180922

REACTIONS (9)
  - Application site pruritus [Unknown]
  - Application site irritation [Unknown]
  - Application site pain [Unknown]
  - Application site discomfort [Unknown]
  - Product storage error [Unknown]
  - Product dispensing error [Recovered/Resolved]
  - Application site erythema [Unknown]
  - Therapy cessation [Not Recovered/Not Resolved]
  - Application site burn [Unknown]

NARRATIVE: CASE EVENT DATE: 201809
